FAERS Safety Report 4607995-1 (Version None)
Quarter: 2005Q2

REPORT INFORMATION
  Report Type: 
  Country: None (occurrence: None)
  Receive Date: 20050303
  Receipt Date: 20041220
  Transmission Date: 20051028
  Serious: No
  Sender: FDA-Public Use
  Company Number: 211235

PATIENT
  Age: 66 Year
  Sex: Female

DRUGS (13)
  1. XOLAIR [Suspect]
     Indication: ASTHMA
     Dosage: 375 MG Q2W SUBCUTANEOUS
     Route: 058
     Dates: start: 20040801
  2. ADVAIR (SALMETEROL XINAFOATE, FLUTICASONE PROPIONATE) [Concomitant]
  3. INTAL [Concomitant]
  4. ALBUTEROL (ALBUTEROL SULFATE, ALBUTEROL) [Concomitant]
  5. ACCOLATE [Concomitant]
  6. PATANOL [Concomitant]
  7. PREDNISONE [Concomitant]
  8. ALLEGRA [Concomitant]
  9. FLONASE [Concomitant]
  10. PREVACID [Concomitant]
  11. LEVOXYL [Concomitant]
  12. FLOVENT [Concomitant]
  13. LIPITOR [Concomitant]

REACTIONS (1)
  - CHEST DISCOMFORT [None]
